FAERS Safety Report 25491627 (Version 1)
Quarter: 2025Q2

REPORT INFORMATION
  Report Type: Spontaneous
  Country: US (occurrence: US)
  Receive Date: 20250629
  Receipt Date: 20250629
  Transmission Date: 20250716
  Serious: Yes (Other)
  Sender: SANOFI AVENTIS
  Company Number: US-SANOFI-02569531

PATIENT
  Sex: Male

DRUGS (4)
  1. SOLIQUA 100/33 [Suspect]
     Active Substance: INSULIN GLARGINE\LIXISENATIDE
     Route: 065
  2. REXULTI [Concomitant]
     Active Substance: BREXPIPRAZOLE
  3. TRESIBA [Concomitant]
     Active Substance: INSULIN DEGLUDEC
  4. LEVEMIR [Concomitant]
     Active Substance: INSULIN DETEMIR

REACTIONS (4)
  - Dementia [Unknown]
  - Memory impairment [Unknown]
  - Visual impairment [Unknown]
  - Product dispensing error [Unknown]
